FAERS Safety Report 18402997 (Version 2)
Quarter: 2020Q4

REPORT INFORMATION
  Report Type: Spontaneous
  Country: PL (occurrence: PL)
  Receive Date: 20201020
  Receipt Date: 20201124
  Transmission Date: 20210114
  Serious: Yes (Hospitalization, Other)
  Sender: FDA-Public Use
  Company Number: PL-AUROBINDO-AUR-APL-2020-052614

PATIENT
  Age: 42 Year
  Sex: Male

DRUGS (6)
  1. LEVETIRACETAM. [Suspect]
     Active Substance: LEVETIRACETAM
     Indication: SEIZURE
     Dosage: 1750 MILLIGRAM, ONCE A DAY (DOSE UP TO 1750 MG DAILY)
     Route: 048
     Dates: start: 2017
  2. MIDAZOLAM. [Concomitant]
     Active Substance: MIDAZOLAM
     Indication: STATUS EPILEPTICUS
     Dosage: UNK
     Route: 065
  3. VALPROIC ACID. [Suspect]
     Active Substance: VALPROIC ACID
     Indication: EPILEPSY
     Dosage: 2000 MILLIGRAM, ONCE A DAY
     Route: 065
  4. CARBAMAZEPINE. [Suspect]
     Active Substance: CARBAMAZEPINE
     Indication: EPILEPSY
  5. VALPROIC ACID. [Suspect]
     Active Substance: VALPROIC ACID
     Indication: FOCAL DYSCOGNITIVE SEIZURES
  6. CARBAMAZEPINE. [Suspect]
     Active Substance: CARBAMAZEPINE
     Indication: FOCAL DYSCOGNITIVE SEIZURES
     Dosage: 900 MILLIGRAM, ONCE A DAY
     Route: 065

REACTIONS (8)
  - Encephalopathy [Unknown]
  - Anxiety [Recovered/Resolved]
  - Anxiety disorder due to a general medical condition [Recovered/Resolved]
  - Hyperammonaemia [Unknown]
  - Delusion [Recovered/Resolved]
  - Status epilepticus [Recovered/Resolved]
  - Anxiety disorder [Recovering/Resolving]
  - Delusional disorder, unspecified type [Recovering/Resolving]
